FAERS Safety Report 9859811 (Version 2)
Quarter: 2014Q1

REPORT INFORMATION
  Report Type: Spontaneous
  Country: NO (occurrence: NO)
  Receive Date: 20140131
  Receipt Date: 20140207
  Transmission Date: 20141002
  Serious: Yes (Death, Other)
  Sender: FDA-Public Use
  Company Number: NO-ABBVIE-14P-122-1195825-00

PATIENT
  Age: 41 Year
  Sex: Male

DRUGS (7)
  1. NORVIR [Suspect]
     Indication: HIV TEST POSITIVE
     Route: 048
  2. REYATAZ [Suspect]
     Indication: HIV TEST POSITIVE
     Route: 048
  3. TRUVADA [Suspect]
     Indication: HIV TEST POSITIVE
     Route: 048
  4. ESCITALOPRAM [Suspect]
     Indication: PRODUCT USED FOR UNKNOWN INDICATION
     Route: 048
  5. CANNABIS [Suspect]
     Indication: PRODUCT USED FOR UNKNOWN INDICATION
  6. SAROTEX [Suspect]
     Indication: PRODUCT USED FOR UNKNOWN INDICATION
     Route: 048
  7. NEURONTIN [Concomitant]
     Indication: PRODUCT USED FOR UNKNOWN INDICATION
     Route: 048

REACTIONS (21)
  - Circulatory collapse [Fatal]
  - Cerebrovascular disorder [Fatal]
  - Cardiovascular disorder [Fatal]
  - Arterial thrombosis [Unknown]
  - Infarction [Unknown]
  - Arterial disorder [Unknown]
  - Connective tissue disorder [Unknown]
  - Coronary artery occlusion [Unknown]
  - Cerebral artery occlusion [Unknown]
  - Drug screen positive [Unknown]
  - Antidepressant drug level [Unknown]
  - Cerebral haemorrhage [Fatal]
  - Cerebral artery stenosis [Unknown]
  - Cerebral infarction [Unknown]
  - Cerebral infarction [Unknown]
  - Cardiac ventricular thrombosis [Unknown]
  - Renal artery thrombosis [Unknown]
  - Aortic thrombosis [Unknown]
  - Arterial thrombosis [Unknown]
  - Emphysema [Unknown]
  - Myocardial infarction [Unknown]
